FAERS Safety Report 10944432 (Version 2)
Quarter: 2015Q3

REPORT INFORMATION
  Report Type: Spontaneous
  Country: JP (occurrence: JP)
  Receive Date: 20150323
  Receipt Date: 20150706
  Transmission Date: 20151125
  Serious: Yes (Death)
  Sender: FDA-Public Use
  Company Number: JP-ROCHE-1460990

PATIENT
  Age: 82 Year
  Sex: Male

DRUGS (9)
  1. PREDONINE [Suspect]
     Active Substance: PREDNISOLONE\PREDNISOLONE ACETATE\PREDNISOLONE SODIUM SUCCINATE
     Indication: DIFFUSE LARGE B-CELL LYMPHOMA
     Dosage: DAY 1-5 OF EVERY CYCLE,
     Route: 048
     Dates: start: 20121101
  2. RESTAMIN KOWA [Concomitant]
     Dosage: 2 TABLETS, 30 MINUTES BEFORE RITUXIMAB ADMINISTRATION
     Route: 048
     Dates: start: 20121115, end: 20130417
  3. DOXORUBICIN [Suspect]
     Active Substance: DOXORUBICIN
     Dosage: DAY 1 OF EVERY CYCLE
     Route: 042
     Dates: start: 20121227, end: 20121227
  4. ONCOVIN [Suspect]
     Active Substance: VINCRISTINE SULFATE
     Indication: DIFFUSE LARGE B-CELL LYMPHOMA
     Dosage: DAY 1 OF EVERY CYCLE
     Route: 042
     Dates: start: 20121101, end: 20121130
  5. ENDOXAN [Suspect]
     Active Substance: CYCLOPHOSPHAMIDE
     Indication: DIFFUSE LARGE B-CELL LYMPHOMA
     Dosage: DAY 1 OF EVERY CYCLE
     Route: 042
     Dates: start: 20121101, end: 20121130
  6. DOXORUBICIN [Suspect]
     Active Substance: DOXORUBICIN
     Indication: DIFFUSE LARGE B-CELL LYMPHOMA
     Dosage: DAY 1 OF EVERY CYCLE
     Route: 042
     Dates: start: 20121101, end: 20121130
  7. ENDOXAN [Suspect]
     Active Substance: CYCLOPHOSPHAMIDE
     Dosage: DAY 1 OF EVERY CYCLE
     Route: 042
     Dates: start: 20121227, end: 20130311
  8. RITUXAN [Suspect]
     Active Substance: RITUXIMAB
     Indication: DIFFUSE LARGE B-CELL LYMPHOMA
     Route: 042
     Dates: start: 20121115, end: 20130417
  9. ONCOVIN [Suspect]
     Active Substance: VINCRISTINE SULFATE
     Dosage: DAY 1 OF EVERY CYCLE
     Route: 042
     Dates: start: 20121227, end: 20130311

REACTIONS (5)
  - Pleural effusion [Fatal]
  - Hepatic function abnormal [Fatal]
  - Ascites [Fatal]
  - Pericardial effusion [Fatal]
  - Sepsis [Fatal]

NARRATIVE: CASE EVENT DATE: 20130218
